FAERS Safety Report 13761087 (Version 8)
Quarter: 2018Q3

REPORT INFORMATION
  Report Type: Report from Study
  Country: DE (occurrence: DE)
  Receive Date: 20170717
  Receipt Date: 20180925
  Transmission Date: 20181010
  Serious: Yes (Other)
  Sender: FDA-Public Use
  Company Number: PHHY2017DE092003

PATIENT
  Sex: Female
  Weight: 65 kg

DRUGS (8)
  1. COSENTYX [Suspect]
     Active Substance: SECUKINUMAB
     Dosage: REDUCED DOSE
     Route: 065
     Dates: start: 20170524
  2. COSENTYX [Suspect]
     Active Substance: SECUKINUMAB
     Dosage: REDUCED DOSE
     Route: 065
     Dates: start: 20170621
  3. COSENTYX [Suspect]
     Active Substance: SECUKINUMAB
     Dosage: 300 MG, ONCE PER APPLICATION
     Route: 065
     Dates: start: 20170718
  4. COSENTYX [Suspect]
     Active Substance: SECUKINUMAB
     Dosage: 300 MG, ONCE PER APPLICATION
     Route: 065
     Dates: start: 20170509
  5. COSENTYX [Suspect]
     Active Substance: SECUKINUMAB
     Dosage: 300 MG, ONCE PER APPLICATION
     Route: 065
     Dates: start: 20170502
  6. COSENTYX [Suspect]
     Active Substance: SECUKINUMAB
     Indication: PSORIASIS
     Dosage: 300 MG, ONCE PER APPLICATION
     Route: 065
     Dates: start: 20170418
  7. COSENTYX [Suspect]
     Active Substance: SECUKINUMAB
     Dosage: 300 MG, ONCE PER APPLICATION
     Route: 065
     Dates: start: 20170425
  8. COSENTYX [Suspect]
     Active Substance: SECUKINUMAB
     Dosage: 300 MG, ONCE PER APPLICATION
     Route: 065
     Dates: start: 20170814, end: 20170918

REACTIONS (2)
  - Gastrointestinal fungal infection [Recovering/Resolving]
  - Genital infection fungal [Recovering/Resolving]

NARRATIVE: CASE EVENT DATE: 20170511
